FAERS Safety Report 9485911 (Version 1)
Quarter: 2013Q3

REPORT INFORMATION
  Report Type: Spontaneous
  Country: US (occurrence: US)
  Receive Date: 20130829
  Receipt Date: 20130829
  Transmission Date: 20140515
  Serious: No
  Sender: FDA-Public Use
  Company Number: US-TEVA-428785USA

PATIENT
  Age: 43 Year
  Sex: Female
  Weight: 64.01 kg

DRUGS (2)
  1. PARAGARD 380A [Suspect]
     Indication: CONTRACEPTION
     Route: 015
     Dates: end: 20130822
  2. VALACICLOVIR HYDROCHLORIDE [Concomitant]
     Indication: HERPES VIRUS INFECTION

REACTIONS (2)
  - Device expulsion [Unknown]
  - Pelvic pain [Unknown]
